FAERS Safety Report 6796918-5 (Version None)
Quarter: 2010Q2

REPORT INFORMATION
  Report Type: 
  Country: None (occurrence: None)
  Receive Date: 20100618
  Receipt Date: 20100611
  Transmission Date: 20101027
  Serious: Yes (Life-Threatening, Hospitalization)
  Sender: FDA-Public Use
  Company Number: WAES 1005USA00530

PATIENT
  Age: 69 Year
  Sex: Male
  Weight: 95.709 kg

DRUGS (9)
  1. ZOCOR [Suspect]
     Indication: ACUTE CORONARY SYNDROME
     Dosage: 40 MG/DAILY/PO
     Route: 048
     Dates: start: 20070501
  2. PLACEBO (UNSPECIFIED) UNK [Suspect]
     Indication: ACUTE CORONARY SYNDROME
     Dosage: 1 TAB/DAILY/PO
     Route: 048
     Dates: start: 20070501
  3. TAB PLACEBO (UNSPECIFIED) UNK [Suspect]
     Indication: ACUTE CORONARY SYNDROME
     Dosage: 1 TAB/DAILY/PO
     Route: 048
     Dates: start: 20070501
  4. TOP GTN UNK [Suspect]
     Dosage: PRN/SL
     Route: 060
     Dates: start: 20100103
  5. ASPIRIN [Suspect]
     Dosage: 75 MG/DAILY/PO
     Route: 048
     Dates: start: 20060416
  6. AMLODIPINE [Concomitant]
  7. CLOPIDOGREL BISULFATE [Concomitant]
  8. NICORANDIL [Concomitant]
  9. RAMIPRIL [Concomitant]

REACTIONS (6)
  - ANAEMIA [None]
  - APPARENT LIFE THREATENING EVENT [None]
  - GASTRIC ULCER HAEMORRHAGE [None]
  - PNEUMONIA [None]
  - POLLAKIURIA [None]
  - UPPER GASTROINTESTINAL HAEMORRHAGE [None]
